FAERS Safety Report 17529180 (Version 2)
Quarter: 2020Q1

REPORT INFORMATION
  Report Type: Report from Study
  Country: None (occurrence: NL)
  Receive Date: 20200312
  Receipt Date: 20200328
  Transmission Date: 20200409
  Serious: Yes (Other)
  Sender: FDA-Public Use
  Company Number: NL-ABBVIE-20K-114-3313944-00

PATIENT
  Sex: Female
  Weight: 66 kg

DRUGS (1)
  1. DUODOPA [Suspect]
     Active Substance: CARBIDOPA\LEVODOPA
     Indication: PARKINSON^S DISEASE
     Dosage: MD: 4.0, CD: 2.0, ED: 1.6?16 HOUR ADMINISTRATION
     Route: 050
     Dates: start: 20160601

REACTIONS (1)
  - Hip fracture [Recovering/Resolving]
